FAERS Safety Report 10752436 (Version 3)
Quarter: 2015Q2

REPORT INFORMATION
  Report Type: Spontaneous
  Country: US (occurrence: US)
  Receive Date: 20150130
  Receipt Date: 20150604
  Transmission Date: 20150821
  Serious: Yes (Other)
  Sender: FDA-Public Use
  Company Number: US-GLAXOSMITHKLINE-A1033078A

PATIENT
  Sex: Female

DRUGS (1)
  1. ADVAIR DISKUS [Suspect]
     Active Substance: FLUTICASONE PROPIONATE\SALMETEROL XINAFOATE
     Indication: ASTHMA
     Dosage: 250/50 MCG
     Dates: start: 2008

REACTIONS (9)
  - Spinal column stenosis [Unknown]
  - Bedridden [Unknown]
  - Malaise [Unknown]
  - Joint range of motion decreased [Unknown]
  - Disability [Unknown]
  - Foot fracture [Unknown]
  - Dyspnoea [Unknown]
  - Fall [Unknown]
  - Arthritis [Unknown]
